FAERS Safety Report 8616879-3 (Version None)
Quarter: 2012Q3

REPORT INFORMATION
  Report Type: 
  Country: None (occurrence: None)
  Receive Date: 20120823
  Receipt Date: 20120809
  Transmission Date: 20120928
  Serious: No
  Sender: FDA-Public Use
  Company Number: US-009507513-1208USA004792

PATIENT

DRUGS (5)
  1. WELCHOL [Concomitant]
  2. CENTRUM (MINERALS (UNSPECIFIED) (+) VITAMINS (UNSPECIFIED)) [Concomitant]
  3. SINGULAIR [Suspect]
     Indication: ASTHMA
     Dosage: 10 MG, QD
     Route: 048
     Dates: end: 20120809
  4. FLUTICASONE PROPIONATE [Concomitant]
  5. VITAMIN D [Concomitant]

REACTIONS (2)
  - MYOGLOBIN BLOOD INCREASED [None]
  - BLOOD CREATINE PHOSPHOKINASE INCREASED [None]
